FAERS Safety Report 15240737 (Version 2)
Quarter: 2018Q3

REPORT INFORMATION
  Report Type: Spontaneous
  Country: GB (occurrence: GB)
  Receive Date: 20180804
  Receipt Date: 20180823
  Transmission Date: 20181010
  Serious: Yes (Hospitalization, Other)
  Sender: FDA-Public Use
  Company Number: GB-AUROBINDO-AUR-APL-2018-038657

PATIENT
  Age: 80 Year
  Sex: Male
  Weight: 79 kg

DRUGS (4)
  1. LCZ 696 [Suspect]
     Active Substance: SACUBITRIL\VALSARTAN
     Indication: CARDIAC FAILURE
     Dosage: UNK
     Route: 048
     Dates: start: 20180413, end: 20180419
  2. SERTRALINE [Suspect]
     Active Substance: SERTRALINE HYDROCHLORIDE
     Indication: PRODUCT USED FOR UNKNOWN INDICATION
     Dosage: UNK
     Route: 065
  3. WARFARIN [Concomitant]
     Active Substance: WARFARIN
     Indication: ATRIAL FIBRILLATION
     Dosage: UNK UNK, ONCE A DAY
     Route: 048
     Dates: start: 20110111
  4. LCZ 696 [Suspect]
     Active Substance: SACUBITRIL\VALSARTAN
     Dosage: UNK
     Route: 048
     Dates: start: 20171010, end: 20180321

REACTIONS (3)
  - Delirium [Recovering/Resolving]
  - Sleep disorder [Recovering/Resolving]
  - Delusional disorder, unspecified type [Recovering/Resolving]

NARRATIVE: CASE EVENT DATE: 20180702
